FAERS Safety Report 12775010 (Version 1)
Quarter: 2016Q3

REPORT INFORMATION
  Report Type: Spontaneous
  Country: BR (occurrence: BR)
  Receive Date: 20160923
  Receipt Date: 20160923
  Transmission Date: 20161109
  Serious: Yes (Other)
  Sender: FDA-Public Use
  Company Number: BR-PFIZER INC-2016440098

PATIENT
  Age: 65 Year
  Sex: Female
  Weight: 81.6 kg

DRUGS (2)
  1. FRONTAL [Suspect]
     Active Substance: ALPRAZOLAM
     Indication: SLEEP DISORDER
     Dosage: HALF TABLET AT NIGHT (STRENGTH 1 MG), UNSPECIFIED FREQUENCY
     Route: 048
     Dates: start: 2015
  2. MIDAZOLAM [Concomitant]
     Active Substance: MIDAZOLAM\MIDAZOLAM HYDROCHLORIDE
     Indication: SLEEP DISORDER
     Dosage: HALF TABLET AT NIGHT, UNSPECIFIED FREQUENCY
     Route: 048
     Dates: start: 2015

REACTIONS (3)
  - Metabolic disorder [Not Recovered/Not Resolved]
  - Overweight [Not Recovered/Not Resolved]
  - Hyperglycaemia [Not Recovered/Not Resolved]
